FAERS Safety Report 24783960 (Version 1)
Quarter: 2024Q4

REPORT INFORMATION
  Report Type: Spontaneous
  Country: US (occurrence: US)
  Receive Date: 20241227
  Receipt Date: 20241227
  Transmission Date: 20250115
  Serious: Yes (Hospitalization, Other)
  Sender: INSUD PHARMA
  Company Number: US-INSUD PHARMA-2412US09898

PATIENT

DRUGS (6)
  1. TESTOSTERONE [Suspect]
     Active Substance: TESTOSTERONE
     Indication: Muscle building therapy
     Dosage: SELF-ADMINISTERED
     Route: 065
  2. TESTOSTERONE CYPIONATE [Suspect]
     Active Substance: TESTOSTERONE CYPIONATE
     Indication: Muscle building therapy
     Dosage: SELF-ADMINISTERED
     Route: 065
  3. LIOTHYRONINE [Suspect]
     Active Substance: LIOTHYRONINE
     Indication: Muscle building therapy
     Dosage: SELF-ADMINISTERED
     Route: 065
  4. ANASTROZOLE [Suspect]
     Active Substance: ANASTROZOLE
     Indication: Muscle building therapy
     Dosage: SELF-ADMINISTERED
     Route: 065
  5. CLOMIPHENE [Suspect]
     Active Substance: CLOMIPHENE
     Indication: Muscle building therapy
     Dosage: SELF-ADMINISTERED
     Route: 065
  6. CLENBUTEROL [Suspect]
     Active Substance: CLENBUTEROL
     Indication: Muscle building therapy
     Dosage: SELF-ADMINISTERED
     Route: 065

REACTIONS (10)
  - Cardiac failure acute [Recovered/Resolved]
  - Cardiogenic shock [Recovered/Resolved]
  - Acute respiratory failure [Recovered/Resolved]
  - Dyspnoea [Recovered/Resolved]
  - Cough [Recovered/Resolved]
  - Nausea [Recovered/Resolved]
  - Pyrexia [Recovered/Resolved]
  - Hypothalamic pituitary adrenal axis suppression [Recovering/Resolving]
  - Hormone level abnormal [Recovering/Resolving]
  - Prescription drug used without a prescription [Unknown]
